FAERS Safety Report 6749095-0 (Version None)
Quarter: 2010Q2

REPORT INFORMATION
  Report Type: 
  Country: None (occurrence: None)
  Receive Date: 20100601
  Receipt Date: 20100521
  Transmission Date: 20101027
  Serious: Yes (Hospitalization)
  Sender: FDA-Public Use
  Company Number: FR-SANOFI-AVENTIS-2010SA029272

PATIENT
  Age: 64 Year
  Sex: Male

DRUGS (10)
  1. EQUANIL [Suspect]
     Dosage: DOSE:0.5 UNIT(S)
     Route: 048
     Dates: start: 20080321, end: 20080324
  2. ZOLPIDEM [Suspect]
     Route: 048
     Dates: start: 20080321, end: 20080324
  3. NOROXIN [Concomitant]
     Indication: INFECTION PROPHYLAXIS
     Route: 048
  4. DUPHALAC /NET/ [Concomitant]
     Indication: DRUG USE FOR UNKNOWN INDICATION
     Dosage: DOSE:2 UNIT(S)
     Route: 048
  5. HALDOL [Concomitant]
     Indication: DRUG USE FOR UNKNOWN INDICATION
     Route: 048
  6. ESOMEPRAZOLE MAGNESIUM [Concomitant]
     Indication: DRUG USE FOR UNKNOWN INDICATION
     Route: 048
  7. KALEORID [Concomitant]
     Indication: DRUG USE FOR UNKNOWN INDICATION
     Route: 048
  8. LASIX [Concomitant]
     Indication: ASCITES
     Route: 048
  9. TENORMIN [Concomitant]
     Indication: DRUG USE FOR UNKNOWN INDICATION
     Route: 048
  10. XYZAL [Concomitant]
     Indication: DRUG USE FOR UNKNOWN INDICATION
     Route: 048

REACTIONS (2)
  - COMA HEPATIC [None]
  - TRANSAMINASES INCREASED [None]
